FAERS Safety Report 11682811 (Version 1)
Quarter: 2015Q4

REPORT INFORMATION
  Report Type: Spontaneous
  Country: US (occurrence: US)
  Receive Date: 20151029
  Receipt Date: 20151029
  Transmission Date: 20160304
  Serious: Yes (Other)
  Sender: FDA-Public Use
  Company Number: US-BAYER-2015-450840

PATIENT
  Age: 53 Year
  Sex: Female

DRUGS (2)
  1. MIRENA [Suspect]
     Active Substance: LEVONORGESTREL
     Indication: MENSTRUAL DISCOMFORT
  2. MIRENA [Suspect]
     Active Substance: LEVONORGESTREL
     Indication: MIGRAINE
     Dosage: 20 MCG/24HR, CONT
     Route: 015
     Dates: start: 2002, end: 201508

REACTIONS (5)
  - Medication error [None]
  - Procedural pain [None]
  - Device dislocation [None]
  - Amenorrhoea [Recovered/Resolved]
  - Off label use [None]

NARRATIVE: CASE EVENT DATE: 2002
